FAERS Safety Report 9026953 (Version 1)
Quarter: 2013Q1

REPORT INFORMATION
  Report Type: Spontaneous
  Country: US (occurrence: US)
  Receive Date: 20130123
  Receipt Date: 20130123
  Transmission Date: 20140127
  Serious: No
  Sender: FDA-Public Use
  Company Number: US-PFIZER INC-2013026514

PATIENT
  Age: 78 Year
  Sex: Female
  Weight: 88.44 kg

DRUGS (4)
  1. NEURONTIN [Suspect]
     Indication: ARTHRALGIA
     Dosage: UNK
     Dates: start: 201301, end: 20130121
  2. CLONAZEPAM [Concomitant]
     Indication: SLEEP DISORDER
     Dosage: 1 MG, 1X/DAY
  3. FELBATOL [Concomitant]
     Indication: CONVULSION
     Dosage: UNK
  4. LEVOTHYROXINE SODIUM [Concomitant]
     Indication: HYPOTHYROIDISM
     Dosage: UNK

REACTIONS (3)
  - Middle insomnia [Unknown]
  - Malaise [Unknown]
  - Off label use [Recovered/Resolved]
